FAERS Safety Report 9408973 (Version 1)
Quarter: 2013Q3

REPORT INFORMATION
  Report Type: Spontaneous
  Country: US (occurrence: None)
  Receive Date: 20130717
  Receipt Date: 20130717
  Transmission Date: 20140515
  Serious: Yes (Other)
  Sender: FDA-Public Use
  Company Number: None

PATIENT
  Age: 70 Year
  Sex: Female
  Weight: 54.89 kg

DRUGS (4)
  1. EXJADE [Suspect]
     Indication: MYELODYSPLASTIC SYNDROME
     Route: 048
     Dates: start: 20130521, end: 20130711
  2. AETNOLOL [Concomitant]
  3. ALLOPURINOL [Concomitant]
  4. ADVIL [Concomitant]

REACTIONS (2)
  - Fatigue [None]
  - Activities of daily living impaired [None]
